FAERS Safety Report 10862288 (Version 1)
Quarter: 2015Q1

REPORT INFORMATION
  Report Type: Spontaneous
  Country: US (occurrence: US)
  Receive Date: 20150224
  Receipt Date: 20150224
  Transmission Date: 20150721
  Serious: No
  Sender: FDA-Public Use
  Company Number: US-009507513-1502USA010421

PATIENT
  Age: 24 Year
  Sex: Female
  Weight: 45.81 kg

DRUGS (1)
  1. NUVARING [Suspect]
     Active Substance: ETHINYL ESTRADIOL\ETONOGESTREL
     Indication: CONTRACEPTION
     Dosage: 1 DF, 3 WEEKS IN AND 1 WEEK OUT
     Route: 067
     Dates: start: 20150222

REACTIONS (8)
  - Abdominal pain [Unknown]
  - Headache [Unknown]
  - Haemorrhage [Unknown]
  - Dyspnoea [Unknown]
  - Nausea [Unknown]
  - Vomiting [Unknown]
  - Crying [Unknown]
  - Agitation [Unknown]

NARRATIVE: CASE EVENT DATE: 20150222
